FAERS Safety Report 10157424 (Version 2)
Quarter: 2014Q2

REPORT INFORMATION
  Report Type: Spontaneous
  Country: US (occurrence: US)
  Receive Date: 20140507
  Receipt Date: 20140519
  Transmission Date: 20141212
  Serious: Yes (Other)
  Sender: FDA-Public Use
  Company Number: US-PFIZER INC-2014121528

PATIENT
  Sex: Male

DRUGS (3)
  1. LYRICA [Suspect]
     Dosage: UNK
  2. BACLOFEN [Suspect]
     Dosage: 10 MG, UNK
  3. VICODIN [Suspect]
     Dosage: 800 MG, UNK

REACTIONS (1)
  - Road traffic accident [Unknown]
